FAERS Safety Report 13443000 (Version 8)
Quarter: 2018Q2

REPORT INFORMATION
  Report Type: Spontaneous
  Country: US (occurrence: US)
  Receive Date: 20170414
  Receipt Date: 20180508
  Transmission Date: 20180711
  Serious: No
  Sender: FDA-Public Use
  Company Number: US-PFIZER INC-2017095103

PATIENT
  Age: 47 Year
  Sex: Female
  Weight: 90.72 kg

DRUGS (15)
  1. LYRICA [Suspect]
     Active Substance: PREGABALIN
     Indication: GENERALISED ANXIETY DISORDER
  2. LYRICA [Suspect]
     Active Substance: PREGABALIN
     Indication: POLYNEUROPATHY
  3. LEVEMIR [Concomitant]
     Active Substance: INSULIN DETEMIR
     Dosage: 40 IU, 1X/DAY (QHS)
     Route: 058
     Dates: start: 201610
  4. LYRICA [Suspect]
     Active Substance: PREGABALIN
     Indication: PAIN
  5. VENTOLIN HFA [Concomitant]
     Active Substance: ALBUTEROL SULFATE
     Dosage: 2 DF, AS NEEDED (2 PUFF BY INHALATION EVERY 4-6 HOURS
     Route: 055
     Dates: start: 201702
  6. SOMA [Concomitant]
     Active Substance: CARISOPRODOL
     Dosage: 350 MG, AS NEEDED (0.5 - 1 TABLET EVERY DAY AT BEDTIME)
     Route: 048
     Dates: start: 201608
  7. SPIRIVA [Concomitant]
     Active Substance: TIOTROPIUM BROMIDE MONOHYDRATE
     Dosage: 2 DF, DAILY (2.5 MCG/ACTUATION; AT THE SAME TIME EACH DAY)
     Route: 055
     Dates: start: 201601
  8. DILTIAZEM CD [Concomitant]
     Active Substance: DILTIAZEM
     Dosage: 180 MG, DAILY
     Dates: start: 201605
  9. FELODIPINE. [Concomitant]
     Active Substance: FELODIPINE
     Indication: NEURALGIA
     Dosage: UNK
  10. LYRICA [Suspect]
     Active Substance: PREGABALIN
     Indication: NEUROPATHY PERIPHERAL
     Dosage: 300 MG, 2X/DAY
     Route: 048
     Dates: start: 201702
  11. LYRICA [Suspect]
     Active Substance: PREGABALIN
     Indication: SCIATIC NERVE NEUROPATHY
  12. LORAZEPAM. [Concomitant]
     Active Substance: LORAZEPAM
     Dosage: 1 MG, AS NEEDED (3 TIMES EVERY DAY AS NEEDED)
     Route: 048
     Dates: start: 201601
  13. LYRICA [Suspect]
     Active Substance: PREGABALIN
     Indication: TYPE 2 DIABETES MELLITUS
     Dosage: 150 MG, 2X/DAY
     Route: 048
     Dates: start: 2016
  14. LYRICA [Suspect]
     Active Substance: PREGABALIN
     Indication: BACK PAIN
  15. INSULIN [Concomitant]
     Active Substance: INSULIN NOS
     Indication: DIABETES MELLITUS
     Dosage: UNK
     Dates: start: 201610

REACTIONS (15)
  - Intentional product misuse [Unknown]
  - Impaired work ability [Recovered/Resolved]
  - Influenza like illness [Recovering/Resolving]
  - Oropharyngeal pain [Unknown]
  - Pain in extremity [Not Recovered/Not Resolved]
  - Drug effect incomplete [Not Recovered/Not Resolved]
  - Pain [Recovering/Resolving]
  - Abdominal discomfort [Recovering/Resolving]
  - Cough [Recovering/Resolving]
  - Burning sensation [Not Recovered/Not Resolved]
  - Pyrexia [Unknown]
  - Gait disturbance [Not Recovered/Not Resolved]
  - Nasal congestion [Recovering/Resolving]
  - Malaise [Recovering/Resolving]
  - Tonsillar disorder [Unknown]
